FAERS Safety Report 6206589-4 (Version None)
Quarter: 2009Q2

REPORT INFORMATION
  Report Type: 
  Country: None (occurrence: None)
  Receive Date: 20090528
  Receipt Date: 20090526
  Transmission Date: 20091009
  Serious: Yes (Other)
  Sender: FDA-Public Use
  Company Number: TR-JNJFOC-20090505843

PATIENT
  Age: 3 Decade
  Sex: Male

DRUGS (3)
  1. RISPERDAL [Suspect]
     Indication: PSYCHOTIC DISORDER
     Route: 065
  2. SERTRALINE HYDROCHLORIDE [Concomitant]
  3. INVEGA [Concomitant]

REACTIONS (2)
  - POLLAKIURIA [None]
  - URINARY INCONTINENCE [None]
